FAERS Safety Report 5225892-8 (Version None)
Quarter: 2007Q1

REPORT INFORMATION
  Report Type: 
  Country: None (occurrence: None)
  Receive Date: 20070201
  Receipt Date: 20070125
  Transmission Date: 20070707
  Serious: Yes (Life-Threatening)
  Sender: FDA-Public Use
  Company Number: 2007AP00669

PATIENT
  Age: 66 Year
  Sex: Male

DRUGS (1)
  1. XYLOCAINE [Suspect]
     Indication: NERVE BLOCK
     Route: 053
     Dates: start: 20050324, end: 20050324

REACTIONS (3)
  - BRADYCARDIA [None]
  - CONVULSION [None]
  - DRUG TOXICITY [None]
